FAERS Safety Report 13461961 (Version 1)
Quarter: 2017Q2

REPORT INFORMATION
  Report Type: Spontaneous
  Country: None (occurrence: US)
  Receive Date: 20170420
  Receipt Date: 20170420
  Transmission Date: 20170830
  Serious: No
  Sender: FDA-Public Use
  Company Number: None

PATIENT
  Age: 15 Year
  Sex: Female
  Weight: 62.8 kg

DRUGS (11)
  1. ONCASPAR [Suspect]
     Active Substance: PEGASPARGASE
     Dates: end: 20160402
  2. CYCLOPHOSPHAMIDE. [Suspect]
     Active Substance: CYCLOPHOSPHAMIDE
     Dates: end: 20160205
  3. DAUNORUBICIN [Suspect]
     Active Substance: DAUNORUBICIN
     Dates: end: 20150806
  4. CYTARABINE. [Suspect]
     Active Substance: CYTARABINE
     Dates: end: 20150831
  5. MERCAPTOPURINE. [Suspect]
     Active Substance: MERCAPTOPURINE
     Dates: end: 20170328
  6. METHOTREXATE. [Suspect]
     Active Substance: METHOTREXATE
     Dates: end: 20170322
  7. PREDNISONE. [Suspect]
     Active Substance: PREDNISONE
     Dates: end: 20170329
  8. DOXORUBICIN HYDROCHLORIDE. [Suspect]
     Active Substance: DOXORUBICIN HYDROCHLORIDE
     Dates: end: 20160113
  9. ETOPOSIDE (VP-16) [Suspect]
     Active Substance: ETOPOSIDE
     Dates: end: 20160205
  10. BACTRIM [Concomitant]
     Active Substance: SULFAMETHOXAZOLE\TRIMETHOPRIM
  11. VINCRISTINE SULFATE. [Suspect]
     Active Substance: VINCRISTINE SULFATE
     Dates: end: 20170329

REACTIONS (8)
  - Aspartate aminotransferase increased [None]
  - Blood creatine phosphokinase increased [None]
  - Transaminases increased [None]
  - Haemosiderosis [None]
  - Alanine aminotransferase increased [None]
  - Hepatitis [None]
  - Cholelithiasis [None]
  - Hepatic fibrosis [None]

NARRATIVE: CASE EVENT DATE: 20170329
